FAERS Safety Report 10427669 (Version 1)
Quarter: 2014Q3

REPORT INFORMATION
  Report Type: Spontaneous
  Country: JP (occurrence: JP)
  Receive Date: 20140903
  Receipt Date: 20140903
  Transmission Date: 20150326
  Serious: Yes (Other)
  Sender: FDA-Public Use
  Company Number: PHHY2013JP158131

PATIENT
  Sex: Male

DRUGS (2)
  1. ALPINY [Concomitant]
     Active Substance: ACETAMINOPHEN
     Indication: LIPOSARCOMA
  2. AFINITOR [Suspect]
     Active Substance: EVEROLIMUS

REACTIONS (1)
  - Peritonitis [Unknown]
